FAERS Safety Report 15436809 (Version 1)
Quarter: 2018Q3

REPORT INFORMATION
  Report Type: Spontaneous
  Country: US (occurrence: US)
  Receive Date: 20180927
  Receipt Date: 20180927
  Transmission Date: 20181010
  Serious: No
  Sender: FDA-Public Use
  Company Number: US-009507513-1809USA012926

PATIENT
  Sex: Female

DRUGS (1)
  1. NEXPLANON [Suspect]
     Active Substance: ETONOGESTREL
     Dosage: ONE ROD EVERY 3 YEARS
     Route: 059

REACTIONS (4)
  - Device deployment issue [Not Recovered/Not Resolved]
  - Pain [Unknown]
  - Device kink [Not Recovered/Not Resolved]
  - Hypoaesthesia [Unknown]
